FAERS Safety Report 4688209-3 (Version None)
Quarter: 2005Q2

REPORT INFORMATION
  Report Type: 
  Country: None (occurrence: None)
  Receive Date: 20050610
  Receipt Date: 20050603
  Transmission Date: 20051028
  Serious: Yes (Hospitalization)
  Sender: FDA-Public Use
  Company Number: BR-ABBOTT-05P-020-0302540-00

PATIENT
  Age: 30 Year
  Sex: Female
  Weight: 62 kg

DRUGS (2)
  1. DEPAKENE [Suspect]
     Indication: EPILEPSY
     Route: 048
     Dates: start: 19980101
  2. GARDENAL [Concomitant]
     Indication: CONVULSION
     Route: 048
     Dates: start: 19980811

REACTIONS (4)
  - CONVULSION [None]
  - PIGMENTED NAEVUS [None]
  - SYNCOPE [None]
  - VOMITING [None]
